FAERS Safety Report 13372799 (Version 1)
Quarter: 2017Q1

REPORT INFORMATION
  Report Type: Spontaneous
  Country: US (occurrence: US)
  Receive Date: 20170326
  Receipt Date: 20170326
  Transmission Date: 20170429
  Serious: Yes (Other)
  Sender: FDA-Public Use
  Company Number: None

PATIENT
  Age: 56 Year
  Sex: Female
  Weight: 94.5 kg

DRUGS (3)
  1. UMBRELLA [Concomitant]
     Active Substance: OCTINOXATE\TITANIUM DIOXIDE
  2. ASPIRINE [Concomitant]
     Active Substance: ASPIRIN
  3. MELOXICAM 7.5 MG [Suspect]
     Active Substance: MELOXICAM
     Route: 048
     Dates: start: 20170322, end: 20170323

REACTIONS (5)
  - Erythema [None]
  - Joint swelling [None]
  - Pruritus [None]
  - Peripheral swelling [None]
  - Skin disorder [None]

NARRATIVE: CASE EVENT DATE: 20170325
